FAERS Safety Report 7070990-X (Version None)
Quarter: 2010Q4

REPORT INFORMATION
  Report Type: 
  Country: None (occurrence: None)
  Receive Date: 20101029
  Receipt Date: 20101022
  Transmission Date: 20110411
  Serious: Yes (Life-Threatening, Hospitalization)
  Sender: FDA-Public Use
  Company Number: FR-JNJFOC-20101007667

PATIENT
  Age: 81 Year
  Sex: Male

DRUGS (4)
  1. DITROPAN [Suspect]
     Indication: URINARY RETENTION
     Route: 048
  2. LASIX [Suspect]
     Indication: BLOOD POTASSIUM INCREASED
     Route: 040
  3. XATRAL [Suspect]
     Indication: URINARY RETENTION
     Route: 048
  4. LOXAPAC [Suspect]
     Indication: AGITATION
     Route: 030

REACTIONS (6)
  - ATRIAL FIBRILLATION [None]
  - BRADYARRHYTHMIA [None]
  - CARDIO-RESPIRATORY ARREST [None]
  - TORSADE DE POINTES [None]
  - VENTRICULAR EXTRASYSTOLES [None]
  - VENTRICULAR TACHYCARDIA [None]
